FAERS Safety Report 8072667-0 (Version None)
Quarter: 2012Q1

REPORT INFORMATION
  Report Type: 
  Country: None (occurrence: None)
  Receive Date: 20120126
  Receipt Date: 20120117
  Transmission Date: 20120608
  Serious: Yes (Hospitalization, Disabling)
  Sender: FDA-Public Use
  Company Number: PH-JNJFOC-20120107006

PATIENT
  Sex: Male
  Weight: 74 kg

DRUGS (5)
  1. INVEGA SUSTENNA [Suspect]
     Indication: SCHIZOPHRENIA
     Route: 030
     Dates: start: 20110811
  2. BIPERIDEN HYDROCHLORIDE TAB [Concomitant]
     Indication: PARKINSONISM
     Dates: start: 20110824
  3. ASCORBIC ACID [Concomitant]
     Indication: MEDICAL DIET
  4. CLONAZEPAM [Concomitant]
     Indication: SLEEP DISORDER
     Dates: start: 20111226, end: 20111226
  5. INVEGA SUSTENNA [Suspect]
     Route: 030
     Dates: start: 20120116

REACTIONS (2)
  - AGITATION [None]
  - PARANOIA [None]
